FAERS Safety Report 13035856 (Version 2)
Quarter: 2017Q1

REPORT INFORMATION
  Report Type: Spontaneous
  Country: US (occurrence: US)
  Receive Date: 20161216
  Receipt Date: 20170103
  Transmission Date: 20170428
  Serious: No
  Sender: FDA-Public Use
  Company Number: US-PFIZER INC-2016581834

PATIENT
  Sex: Female

DRUGS (1)
  1. LYRICA [Suspect]
     Active Substance: PREGABALIN
     Indication: MULTIPLE SCLEROSIS
     Dosage: 1 TO 2 (UNITS NOT REPORTED)

REACTIONS (3)
  - Dizziness [Not Recovered/Not Resolved]
  - Vertigo [Unknown]
  - Product use issue [Unknown]
